FAERS Safety Report 16396873 (Version 1)
Quarter: 2019Q2

REPORT INFORMATION
  Report Type: Spontaneous
  Country: US (occurrence: US)
  Receive Date: 20190606
  Receipt Date: 20190606
  Transmission Date: 20190711
  Serious: No
  Sender: FDA-Public Use
  Company Number: US-HETERO CORPORATE-HET2019US00756

PATIENT
  Sex: Female
  Weight: 66.67 kg

DRUGS (1)
  1. HYDRALAZINE [Suspect]
     Active Substance: HYDRALAZINE HYDROCHLORIDE
     Indication: HYPERTENSION
     Dosage: 25 MG, T.I.D.
     Route: 065
     Dates: start: 20190320

REACTIONS (6)
  - Fatigue [Recovering/Resolving]
  - Dysgeusia [Recovering/Resolving]
  - Chest discomfort [Recovering/Resolving]
  - Musculoskeletal discomfort [Recovering/Resolving]
  - Drug ineffective [Recovering/Resolving]
  - Intentional overdose [Recovering/Resolving]
